FAERS Safety Report 8590193-7 (Version None)
Quarter: 2012Q3

REPORT INFORMATION
  Report Type: 
  Country: None (occurrence: None)
  Receive Date: 20120813
  Receipt Date: 20120806
  Transmission Date: 20120928
  Serious: Yes (Other)
  Sender: FDA-Public Use
  Company Number: US-ROCHE-792838

PATIENT
  Sex: Male
  Weight: 57.658 kg

DRUGS (2)
  1. ACCUTANE [Suspect]
     Indication: ACNE
     Route: 048
     Dates: start: 20000106, end: 20020215
  2. ACCUTANE [Suspect]
     Route: 048
     Dates: start: 20020223, end: 20030407

REACTIONS (6)
  - COLITIS ULCERATIVE [None]
  - ANXIETY [None]
  - CROHN'S DISEASE [None]
  - IRRITABLE BOWEL SYNDROME [None]
  - INFLAMMATORY BOWEL DISEASE [None]
  - STRESS [None]
